FAERS Safety Report 16544495 (Version 11)
Quarter: 2021Q2

REPORT INFORMATION
  Report Type: Report from Study
  Country: CO (occurrence: CO)
  Receive Date: 20190709
  Receipt Date: 20210520
  Transmission Date: 20210716
  Serious: Yes (Hospitalization, Other)
  Sender: FDA-Public Use
  Company Number: PHHY2019CO156643

PATIENT
  Sex: Female
  Weight: 52 kg

DRUGS (14)
  1. APIXABAN [Concomitant]
     Active Substance: APIXABAN
     Indication: PRODUCT USED FOR UNKNOWN INDICATION
     Dosage: UNK, QD
     Route: 048
  2. EVEROLIMUS. [Concomitant]
     Active Substance: EVEROLIMUS
     Indication: PRODUCT USED FOR UNKNOWN INDICATION
     Dosage: UNK (GENERIC)
     Route: 065
     Dates: start: 20210414
  3. EXEMESTANE. [Concomitant]
     Active Substance: EXEMESTANE
     Indication: BREAST CANCER
     Dosage: 10 MG
     Route: 065
  4. METFORMIN [Suspect]
     Active Substance: METFORMIN HYDROCHLORIDE
     Indication: DIABETES MELLITUS
     Dosage: 850 MG, Q12H (STARTED 8 YEARS AGO)
     Route: 048
  5. LINAGLIPTIN [Concomitant]
     Active Substance: LINAGLIPTIN
     Indication: DIABETES MELLITUS
     Dosage: 200 MG, QD
     Route: 048
  6. AFINITOR [Suspect]
     Active Substance: EVEROLIMUS
     Dosage: 5 MG, QD
     Route: 048
  7. EXEMESTANE. [Concomitant]
     Active Substance: EXEMESTANE
     Dosage: 25 MG, QD (STARTED 8 YEARS AGO)
     Route: 048
  8. INSULIN GLARGINE [Concomitant]
     Active Substance: INSULIN GLARGINE
     Indication: DIABETES MELLITUS
     Dosage: 13 IU, QD
     Route: 065
  9. AFINITOR [Suspect]
     Active Substance: EVEROLIMUS
     Indication: BREAST CANCER
     Dosage: 5 MG, QD
     Route: 048
     Dates: start: 2017
  10. LOSARTAN. [Suspect]
     Active Substance: LOSARTAN
     Indication: HYPERTENSION
     Dosage: 50 MG, Q12H (STARTED 20 YEARS AGO)
     Route: 048
  11. CARVEDILOL. [Suspect]
     Active Substance: CARVEDILOL
     Indication: ARRHYTHMIA
     Dosage: UNK, Q12H (STARTED 4 YEARS AGO)
     Route: 048
  12. AFINITOR [Suspect]
     Active Substance: EVEROLIMUS
     Dosage: 10 MG, QD (STARTED 8 YEARS AGO)
     Route: 048
  13. AFINITOR [Suspect]
     Active Substance: EVEROLIMUS
     Dosage: 5 MG, QD
     Route: 048
     Dates: start: 20180328
  14. LEVOTHYROXINE. [Concomitant]
     Active Substance: LEVOTHYROXINE
     Indication: PRODUCT USED FOR UNKNOWN INDICATION
     Dosage: UNK
     Route: 065

REACTIONS (17)
  - Vomiting [Unknown]
  - Cough [Unknown]
  - Blood potassium decreased [Unknown]
  - Poor quality sleep [Unknown]
  - Anxiety [Unknown]
  - Insomnia [Unknown]
  - Bronchitis [Unknown]
  - Blood sodium decreased [Unknown]
  - Hypertension [Unknown]
  - White blood cell count decreased [Unknown]
  - Arrhythmia [Unknown]
  - Crying [Unknown]
  - Blood iron decreased [Unknown]
  - Anaemia [Unknown]
  - Product use in unapproved indication [Unknown]
  - Pulmonary valve incompetence [Unknown]
  - Fear [Unknown]
